FAERS Safety Report 19624697 (Version 5)
Quarter: 2021Q3

REPORT INFORMATION
  Report Type: Report from Study
  Country: US (occurrence: US)
  Receive Date: 20210729
  Receipt Date: 20210903
  Transmission Date: 20211014
  Serious: Yes (Other)
  Sender: FDA-Public Use
  Company Number: NVSC2021US165467

PATIENT
  Age: 73 Year
  Sex: Male

DRUGS (1)
  1. ENTRESTO [Suspect]
     Active Substance: SACUBITRIL\VALSARTAN
     Indication: ATRIAL FIBRILLATION
     Dosage: 50 MG, BID (24/26 MG)
     Route: 065
     Dates: start: 20210706

REACTIONS (13)
  - Hypotension [Recovering/Resolving]
  - Cervical vertebral fracture [Recovering/Resolving]
  - Fall [Recovering/Resolving]
  - Loss of consciousness [Recovered/Resolved]
  - Head injury [Recovered/Resolved]
  - Tongue erythema [Recovered/Resolved]
  - Tongue discomfort [Recovered/Resolved]
  - Product use in unapproved indication [Unknown]
  - Palpitations [Recovering/Resolving]
  - Viral infection [Recovering/Resolving]
  - Blood sodium decreased [Recovering/Resolving]
  - Glossodynia [Recovered/Resolved]
  - Swollen tongue [Recovered/Resolved]

NARRATIVE: CASE EVENT DATE: 20210706
